FAERS Safety Report 14171703 (Version 1)
Quarter: 2017Q4

REPORT INFORMATION
  Report Type: Spontaneous
  Country: US (occurrence: US)
  Receive Date: 20171108
  Receipt Date: 20171108
  Transmission Date: 20180321
  Serious: No
  Sender: FDA-Public Use
  Company Number: US-BIOGEN-2017BV000400

PATIENT
  Age: 33 Year
  Sex: Male

DRUGS (1)
  1. ALPROLIX [Suspect]
     Active Substance: EFTRENONACOG ALFA
     Indication: PRODUCT USED FOR UNKNOWN INDICATION
     Dosage: 2675 (UNITS NOT PROVIDED)
     Route: 065

REACTIONS (2)
  - Haemorrhage [Unknown]
  - Accident [Unknown]

NARRATIVE: CASE EVENT DATE: 20171031
